FAERS Safety Report 12758838 (Version 1)
Quarter: 2016Q3

REPORT INFORMATION
  Report Type: Spontaneous
  Country: ES (occurrence: ES)
  Receive Date: 20160919
  Receipt Date: 20160919
  Transmission Date: 20161109
  Serious: Yes (Other)
  Sender: FDA-Public Use
  Company Number: ES-NOVOPROD-509742

PATIENT
  Age: 56 Year
  Sex: Female

DRUGS (2)
  1. CONBRIZA [Suspect]
     Active Substance: BAZEDOXIFENE ACETATE
     Indication: PRODUCT USED FOR UNKNOWN INDICATION
     Dosage: UNK
     Route: 048
     Dates: start: 20141014, end: 20160311
  2. VAGIFEM [Suspect]
     Active Substance: ESTRADIOL
     Indication: PRODUCT USED FOR UNKNOWN INDICATION
     Dosage: UNK
     Route: 067
     Dates: start: 20150408, end: 20160311

REACTIONS (1)
  - Retinal vein thrombosis [Unknown]

NARRATIVE: CASE EVENT DATE: 20160311
